FAERS Safety Report 12252441 (Version 1)
Quarter: 2016Q2

REPORT INFORMATION
  Report Type: Spontaneous
  Country: US (occurrence: None)
  Receive Date: 20160408
  Receipt Date: 20160408
  Transmission Date: 20160815
  Serious: Yes (Hospitalization)
  Sender: FDA-Public Use
  Company Number: None

PATIENT
  Age: 45 Year
  Sex: Female

DRUGS (16)
  1. ORENCIA [Suspect]
     Active Substance: ABATACEPT
     Indication: RHEUMATOID ARTHRITIS
     Route: 058
     Dates: start: 20160211
  2. CLOTRIMAZOLE. [Concomitant]
     Active Substance: CLOTRIMAZOLE
  3. AMPICILLIN [Concomitant]
     Active Substance: AMPICILLIN
  4. METHOTREXATE [Concomitant]
     Active Substance: METHOTREXATE
  5. METFORMIN [Concomitant]
     Active Substance: METFORMIN HYDROCHLORIDE
  6. HUMIRA [Concomitant]
     Active Substance: ADALIMUMAB
  7. METHYPRED [Concomitant]
  8. TRUPLUS [Concomitant]
  9. FLUCONAZOLE. [Concomitant]
     Active Substance: FLUCONAZOLE
  10. CARISOPRODOL. [Concomitant]
     Active Substance: CARISOPRODOL
  11. CEPHALEXIN. [Concomitant]
     Active Substance: CEPHALEXIN
  12. LISINOPRIL. [Concomitant]
     Active Substance: LISINOPRIL
  13. CLINDAMYCIN [Concomitant]
     Active Substance: CLINDAMYCIN\CLINDAMYCIN PHOSPHATE
  14. FOLIC ACID. [Concomitant]
     Active Substance: FOLIC ACID
  15. TRUETEST [Concomitant]
  16. METHOTREXATE [Concomitant]
     Active Substance: METHOTREXATE

REACTIONS (1)
  - Drug dose omission [None]

NARRATIVE: CASE EVENT DATE: 2016
